FAERS Safety Report 23615918 (Version 2)
Quarter: 2024Q2

REPORT INFORMATION
  Report Type: Report from Study
  Country: KR (occurrence: KR)
  Receive Date: 20240311
  Receipt Date: 20240408
  Transmission Date: 20240716
  Serious: Yes (Other)
  Sender: FDA-Public Use
  Company Number: KR-KOREA IPSEN Pharma-2023-08120

PATIENT

DRUGS (4)
  1. CABOZANTINIB [Suspect]
     Active Substance: CABOZANTINIB
     Indication: Hepatocellular carcinoma
     Dosage: 40 MG, QD
     Route: 065
     Dates: start: 20230214
  2. HARNAL [Concomitant]
     Active Substance: TAMSULOSIN HYDROCHLORIDE
     Indication: Chronic kidney disease
     Dosage: 0.2 MG, QD
     Route: 048
     Dates: start: 20220429
  3. FENTANYL [Concomitant]
     Active Substance: FENTANYL\FENTANYL CITRATE
     Indication: Prophylaxis
     Dosage: 1 PATCH, AS NEEDED
     Route: 062
     Dates: start: 20230214, end: 20230425
  4. BOLGRE SOLUTION [Concomitant]
     Indication: Anaemia
     Route: 048
     Dates: start: 20230228

REACTIONS (3)
  - Enterocolitis [Recovered/Resolved]
  - Hypertension [Recovered/Resolved]
  - Stomatitis [Recovered/Resolved]

NARRATIVE: CASE EVENT DATE: 20230215
